FAERS Safety Report 8662934 (Version 3)
Quarter: 2012Q4

REPORT INFORMATION
  Report Type: Report from Study
  Country: GR (occurrence: GR)
  Receive Date: 20120712
  Receipt Date: 20120924
  Transmission Date: 20130627
  Serious: Yes (Death, Other)
  Sender: FDA-Public Use
  Company Number: GR-ROCHE-1086120

PATIENT
  Age: 56 Year
  Sex: Male

DRUGS (5)
  1. AVASTIN [Suspect]
     Indication: NON-SMALL CELL LUNG CANCER
     Route: 065
  2. TARCEVA [Suspect]
     Indication: NON-SMALL CELL LUNG CANCER
     Dosage: daily
     Route: 065
  3. VINORELBINE TARTRATE [Suspect]
     Indication: NON-SMALL CELL LUNG CANCER
  4. DOCETAXEL [Concomitant]
     Indication: NON-SMALL CELL LUNG CANCER
     Route: 065
  5. CISPLATIN [Concomitant]
     Indication: NON-SMALL CELL LUNG CANCER
     Route: 065

REACTIONS (6)
  - Pneumonia aspiration [Fatal]
  - Disease progression [Unknown]
  - Metastases to lung [Unknown]
  - Metastases to liver [Unknown]
  - Proteinuria [Unknown]
  - Hypertension [Recovering/Resolving]
